FAERS Safety Report 25202575 (Version 1)
Quarter: 2025Q2

REPORT INFORMATION
  Report Type: Spontaneous
  Country: ES (occurrence: ES)
  Receive Date: 20250416
  Receipt Date: 20250416
  Transmission Date: 20250716
  Serious: Yes (Hospitalization)
  Sender: GALPHARM INTERNATIONAL
  Company Number: MX-HALEON-MXCH2023AMR044519

PATIENT
  Age: 54 Year
  Sex: Female

DRUGS (2)
  1. IBUPROFEN [Suspect]
     Active Substance: IBUPROFEN
     Indication: Tension headache
     Route: 048
  2. AMOXICILLIN [Suspect]
     Active Substance: AMOXICILLIN
     Indication: Product used for unknown indication
     Route: 065

REACTIONS (2)
  - Meningitis aseptic [Recovered/Resolved]
  - Drug hypersensitivity [Unknown]
